FAERS Safety Report 7529851-1 (Version None)
Quarter: 2011Q2

REPORT INFORMATION
  Report Type: 
  Country: None (occurrence: None)
  Receive Date: 20110607
  Receipt Date: 20110214
  Transmission Date: 20111010
  Serious: Yes (Hospitalization, Other)
  Sender: FDA-Public Use
  Company Number: US-BAYER-201026761NA

PATIENT
  Age: 33 Year
  Sex: Female
  Weight: 61 kg

DRUGS (26)
  1. PREVACID [Concomitant]
  2. ZANTAC [Concomitant]
     Indication: DYSPEPSIA
     Dosage: 150 MG, UNK
     Route: 048
  3. PEPTO-BISMOL [Concomitant]
     Indication: NAUSEA
  4. REGLAN [Concomitant]
  5. PROTON PUMP INHIBITORS [Concomitant]
     Indication: GASTROOESOPHAGEAL REFLUX DISEASE
  6. FENTANYL [Concomitant]
     Dosage: 100 UNK, UNK
     Route: 042
     Dates: start: 20080718, end: 20080718
  7. H2 BLOCKER [Concomitant]
     Indication: GASTROOESOPHAGEAL REFLUX DISEASE
  8. YASMIN [Suspect]
     Indication: PRODUCT USED FOR UNKNOWN INDICATION
     Route: 048
  9. ASCORBIC ACID [Concomitant]
  10. ZEGERID [Concomitant]
     Indication: GASTROOESOPHAGEAL REFLUX DISEASE
  11. ANCEF [Concomitant]
     Dosage: UNK
     Route: 042
     Dates: start: 20080718, end: 20080718
  12. VICODIN [Concomitant]
     Route: 048
  13. TORADOL [Concomitant]
     Dosage: 30 MG, UNK
     Route: 042
     Dates: start: 20080718, end: 20080718
  14. PROTONIX [Concomitant]
     Indication: ABDOMINAL PAIN
     Dates: start: 20070801, end: 20080401
  15. ZEGERID [Concomitant]
     Indication: ABDOMINAL PAIN
     Dosage: DAILY
     Route: 048
     Dates: start: 20080601, end: 20081001
  16. ZOFRAN [Concomitant]
     Dosage: 4 MG, UNK
     Route: 042
     Dates: start: 20080718, end: 20080718
  17. YAZ [Suspect]
     Indication: CONTRACEPTION
     Route: 048
     Dates: start: 20080501, end: 20080901
  18. YAZ [Suspect]
     Indication: PREMENSTRUAL SYNDROME
  19. MULTI-VITAMINS [Concomitant]
     Dosage: UNK UNK, QD
     Route: 048
  20. GAS-X [Concomitant]
     Indication: DYSPEPSIA
     Dosage: DAILY
     Route: 048
  21. PEPTO-BISMOL [Concomitant]
     Indication: DYSPEPSIA
  22. PHENERGAN HCL [Concomitant]
     Dosage: 25 MG, UNK
     Route: 048
     Dates: start: 20080718, end: 20080718
  23. PROTONIX [Concomitant]
     Indication: GASTROOESOPHAGEAL REFLUX DISEASE
  24. DIETARY SUPPLEMENTS [Concomitant]
  25. FIBER [Concomitant]
     Route: 048
  26. VERSED [Concomitant]
     Dosage: 2 MG, UNK
     Route: 042
     Dates: start: 20080718, end: 20080718

REACTIONS (10)
  - CHOLECYSTITIS [None]
  - MENTAL DISORDER [None]
  - VOMITING [None]
  - MUSCULOSKELETAL PAIN [None]
  - NAUSEA [None]
  - ABDOMINAL PAIN [None]
  - OESOPHAGITIS [None]
  - ABDOMINAL PAIN UPPER [None]
  - GASTRITIS [None]
  - BILIARY DYSKINESIA [None]
